FAERS Safety Report 16058573 (Version 1)
Quarter: 2019Q1

REPORT INFORMATION
  Report Type: Report from Study
  Country: None (occurrence: US)
  Receive Date: 20190311
  Receipt Date: 20190311
  Transmission Date: 20190418
  Serious: Yes (Other)
  Sender: FDA-Public Use
  Company Number: US-ABBVIE-18K-163-2490924-00

PATIENT
  Age: 74 Year
  Sex: Female

DRUGS (5)
  1. SULFASALAZINE. [Concomitant]
     Active Substance: SULFASALAZINE
     Indication: PRODUCT USED FOR UNKNOWN INDICATION
  2. HUMIRA [Suspect]
     Active Substance: ADALIMUMAB
     Route: 058
     Dates: start: 2018, end: 20190128
  3. PREDNISONE. [Concomitant]
     Active Substance: PREDNISONE
     Indication: PRODUCT USED FOR UNKNOWN INDICATION
  4. NEURONTIN [Concomitant]
     Active Substance: GABAPENTIN
     Indication: PRODUCT USED FOR UNKNOWN INDICATION
  5. HUMIRA [Suspect]
     Active Substance: ADALIMUMAB
     Indication: RHEUMATOID ARTHRITIS
     Route: 058
     Dates: start: 20180816, end: 2018

REACTIONS (34)
  - Malaise [Unknown]
  - Arthralgia [Recovered/Resolved]
  - Musculoskeletal pain [Unknown]
  - Incorrect dose administered [Unknown]
  - Rhinorrhoea [Unknown]
  - Visual impairment [Not Recovered/Not Resolved]
  - Oropharyngeal pain [Unknown]
  - Rheumatoid arthritis [Unknown]
  - Wrong technique in product usage process [Unknown]
  - Respiratory tract congestion [Unknown]
  - Depression [Unknown]
  - Cough [Unknown]
  - Joint swelling [Recovered/Resolved]
  - Hypoaesthesia [Unknown]
  - Pain [Recovering/Resolving]
  - Paraesthesia [Unknown]
  - Drug ineffective [Unknown]
  - Musculoskeletal stiffness [Unknown]
  - Joint stiffness [Unknown]
  - Coronary artery occlusion [Unknown]
  - Loss of personal independence in daily activities [Recovered/Resolved]
  - Wheezing [Unknown]
  - Swelling [Unknown]
  - Injection site bruising [Unknown]
  - Peripheral swelling [Unknown]
  - Pain in extremity [Unknown]
  - Arthralgia [Unknown]
  - Palpitations [Not Recovered/Not Resolved]
  - Neck pain [Unknown]
  - Vision blurred [Unknown]
  - Gait disturbance [Recovered/Resolved]
  - Peripheral swelling [Not Recovered/Not Resolved]
  - Pain [Unknown]
  - Pain in extremity [Not Recovered/Not Resolved]

NARRATIVE: CASE EVENT DATE: 2018
